FAERS Safety Report 4849333-5 (Version None)
Quarter: 2005Q4

REPORT INFORMATION
  Report Type: 
  Country: None (occurrence: None)
  Receive Date: 20051207
  Receipt Date: 20051116
  Transmission Date: 20060501
  Serious: Yes (Other)
  Sender: FDA-Public Use
  Company Number: 219574

PATIENT
  Age: 16 Year
  Sex: Male
  Weight: 75.8 kg

DRUGS (1)
  1. NUTROPIN [Suspect]
     Indication: GROWTH HORMONE DEFICIENCY
     Dosage: 3.5 MG, QD, SUBCUTANEOUS
     Route: 058
     Dates: start: 20000502

REACTIONS (6)
  - FEMUR FRACTURE [None]
  - FOOT FRACTURE [None]
  - FRACTURE [None]
  - OSTEOPOROSIS [None]
  - UPPER LIMB FRACTURE [None]
  - WRIST FRACTURE [None]
